FAERS Safety Report 8956819 (Version 3)
Quarter: 2013Q1

REPORT INFORMATION
  Report Type: Spontaneous
  Country: US (occurrence: None)
  Receive Date: 20121130
  Receipt Date: 20130315
  Transmission Date: 20140127
  Serious: Yes (Death, Hospitalization)
  Sender: FDA-Public Use
  Company Number: 2012SGN00526

PATIENT
  Age: 43 Year
  Sex: Female
  Weight: 102.9 kg

DRUGS (5)
  1. BRENTUXIMAB VEDOTIN [Suspect]
     Indication: HODGKIN^S DISEASE REFRACTORY
     Route: 042
     Dates: start: 20121112, end: 20121112
  2. BENDAMUSTINE [Suspect]
     Indication: HODGKIN^S DISEASE REFRACTORY
     Dates: start: 20121112, end: 20121113
  3. VICODIN (HYDROCODONE BITARTRATE, PARACETAMOL) [Concomitant]
  4. XANAX (ALPRAZOLAM) [Concomitant]
  5. DEXAMETHASONE [Concomitant]

REACTIONS (7)
  - Peripheral motor neuropathy [None]
  - Spinal cord disorder [None]
  - Nervous system disorder [None]
  - Asthenia [None]
  - Hodgkin^s disease [None]
  - Malignant neoplasm progression [None]
  - Motor dysfunction [None]
